FAERS Safety Report 7680588-8 (Version None)
Quarter: 2011Q3

REPORT INFORMATION
  Report Type: 
  Country: None (occurrence: None)
  Receive Date: 20110812
  Receipt Date: 20110803
  Transmission Date: 20111222
  Serious: Yes (Hospitalization, Other)
  Sender: FDA-Public Use
  Company Number: JP-EISAI INC-E3810-04730-SPO-JP

PATIENT
  Age: 78 Year
  Sex: Female
  Weight: 60 kg

DRUGS (15)
  1. PREDNISOLONE [Concomitant]
     Route: 048
     Dates: end: 20110420
  2. MUCOSTA [Concomitant]
     Indication: PROPHYLAXIS
     Route: 048
     Dates: end: 20110416
  3. CALCIUM POLYSTYRENE SULFONATE [Concomitant]
     Route: 048
     Dates: end: 20110416
  4. TOYOFAROL [Concomitant]
     Route: 048
     Dates: end: 20110416
  5. RABEPRAZOLE SODIUM [Suspect]
     Dosage: UNKNOWN
     Route: 048
     Dates: end: 20110416
  6. TACROLIMUS [Suspect]
     Indication: RHEUMATOID VASCULITIS
     Route: 048
     Dates: start: 20110404, end: 20110420
  7. SIGMART [Concomitant]
  8. CELECOXIB [Suspect]
     Indication: SPINAL COMPRESSION FRACTURE
     Route: 048
     Dates: start: 20090319, end: 20110416
  9. ALOSENN [Concomitant]
     Route: 048
     Dates: end: 20110416
  10. MAGMITT [Concomitant]
     Route: 048
     Dates: end: 20101231
  11. LYRICA [Suspect]
     Indication: SPINAL COMPRESSION FRACTURE
     Dosage: UNKNOWN
     Route: 048
     Dates: start: 20110404, end: 20110416
  12. RIZE [Concomitant]
     Indication: SPINAL COMPRESSION FRACTURE
     Route: 048
     Dates: end: 20110416
  13. NERIPROCT [Concomitant]
     Indication: HAEMORRHOIDS
  14. NICORANDIL [Concomitant]
     Route: 042
     Dates: end: 20110420
  15. FUROSEMIDE [Concomitant]
     Route: 048
     Dates: end: 20110416

REACTIONS (8)
  - PNEUMONIA [None]
  - OXYGEN SATURATION DECREASED [None]
  - STOMATITIS [None]
  - SEPSIS [None]
  - PLATELET COUNT DECREASED [None]
  - BLOOD PRESSURE DECREASED [None]
  - COMA [None]
  - AGRANULOCYTOSIS [None]
